FAERS Safety Report 17073274 (Version 1)
Quarter: 2019Q4

REPORT INFORMATION
  Report Type: Report from Study
  Country: None (occurrence: US)
  Receive Date: 20191125
  Receipt Date: 20191125
  Transmission Date: 20200122
  Serious: Yes (Hospitalization, Other)
  Sender: FDA-Public Use
  Company Number: US-ABBVIE-19K-163-2970212-00

PATIENT
  Age: 64 Year
  Sex: Male
  Weight: 77 kg

DRUGS (1)
  1. VENCLEXTA [Suspect]
     Active Substance: VENETOCLAX
     Indication: ACUTE MYELOID LEUKAEMIA
     Dosage: SWALLOW WHOLE, DO NOT CHEW CRUSH OR SPLIT- DO NOT START UNTIL ADVISED
     Route: 048
     Dates: start: 201908, end: 2019

REACTIONS (9)
  - Agitation [Recovering/Resolving]
  - Pneumonia fungal [Recovering/Resolving]
  - Platelet count decreased [Recovering/Resolving]
  - Somnolence [Recovering/Resolving]
  - Pulmonary congestion [Recovering/Resolving]
  - Haematemesis [Recovering/Resolving]
  - Ascites [Recovered/Resolved]
  - Blood creatinine increased [Not Recovered/Not Resolved]
  - Pneumonia bacterial [Recovering/Resolving]

NARRATIVE: CASE EVENT DATE: 201908
